FAERS Safety Report 19709726 (Version 3)
Quarter: 2021Q4

REPORT INFORMATION
  Report Type: Spontaneous
  Country: CN (occurrence: CN)
  Receive Date: 20210817
  Receipt Date: 20211110
  Transmission Date: 20220303
  Serious: Yes (Hospitalization, Other)
  Sender: FDA-Public Use
  Company Number: CN-BLUEPRINT MEDICINES CORPORATION-SO-CN-2021-001288

PATIENT
  Age: 62 Year
  Sex: Male

DRUGS (2)
  1. AYVAKIT [Suspect]
     Active Substance: AVAPRITINIB
     Indication: Gastrointestinal stromal tumour
     Route: 048
     Dates: start: 20210705, end: 2021
  2. AYVAKIT [Suspect]
     Active Substance: AVAPRITINIB
     Dosage: TWICE EVERY THREE DAYS
     Route: 048
     Dates: start: 2021, end: 20211014

REACTIONS (3)
  - Ascites [Unknown]
  - Generalised oedema [Not Recovered/Not Resolved]
  - Oedema [Recovering/Resolving]

NARRATIVE: CASE EVENT DATE: 20210720
